FAERS Safety Report 11596859 (Version 4)
Quarter: 2017Q1

REPORT INFORMATION
  Report Type: Report from Study
  Country: US (occurrence: US)
  Receive Date: 20151006
  Receipt Date: 20170130
  Transmission Date: 20170428
  Serious: Yes (Hospitalization)
  Sender: FDA-Public Use
  Company Number: US-ACTELION-A-NJ2015-125122

PATIENT
  Age: 70 Year
  Sex: Female

DRUGS (1)
  1. VENTAVIS [Suspect]
     Active Substance: ILOPROST
     Indication: PULMONARY ARTERIAL HYPERTENSION
     Dosage: 5 MCG, 6-9X DAILY
     Route: 055
     Dates: start: 20100201

REACTIONS (10)
  - Urinary tract infection [Unknown]
  - Condition aggravated [Unknown]
  - Malaise [Unknown]
  - Syncope [Unknown]
  - Cataract operation [Unknown]
  - Dyspnoea [Unknown]
  - Bladder cancer [Unknown]
  - Bladder neoplasm surgery [Unknown]
  - Pyelonephritis [Unknown]
  - Transfusion [Unknown]
